FAERS Safety Report 23451276 (Version 1)
Quarter: 2024Q1

REPORT INFORMATION
  Report Type: Spontaneous
  Country: US (occurrence: None)
  Receive Date: 20240126
  Receipt Date: 20240126
  Transmission Date: 20240410
  Serious: Yes (Death, Hospitalization)
  Sender: FDA-Public Use
  Company Number: None

PATIENT
  Age: 78 Year
  Sex: Female

DRUGS (13)
  1. TADALAFIL [Suspect]
     Active Substance: TADALAFIL
     Indication: Pulmonary arterial hypertension
     Dosage: 20MG QD ORAL?
     Route: 048
     Dates: start: 20220915, end: 20231227
  2. TREPROSTINIL [Concomitant]
     Active Substance: TREPROSTINIL
  3. FUROSEMIDE [Concomitant]
     Active Substance: FUROSEMIDE
  4. AMLODIPINE [Concomitant]
     Active Substance: AMLODIPINE BESYLATE
  5. LISINOPRIL [Concomitant]
     Active Substance: LISINOPRIL
  6. ASPIRIN [Concomitant]
     Active Substance: ASPIRIN
  7. LEVOTHYROXINE [Concomitant]
     Active Substance: LEVOTHYROXINE\LEVOTHYROXINE SODIUM
  8. ATORVASTATIN [Concomitant]
     Active Substance: ATORVASTATIN
  9. FENOFIBRATE [Concomitant]
     Active Substance: FENOFIBRATE
  10. CHLORTHALIDONE [Concomitant]
     Active Substance: CHLORTHALIDONE
  11. SPIRONOLACTONE [Concomitant]
     Active Substance: SPIRONOLACTONE
  12. METFORMIN [Concomitant]
     Active Substance: METFORMIN HYDROCHLORIDE
  13. MELATONIN [Concomitant]
     Active Substance: MELATONIN

REACTIONS (7)
  - Clostridium difficile infection [None]
  - Septic shock [None]
  - Hypophagia [None]
  - Delirium [None]
  - Bradycardia [None]
  - Cardiac arrest [None]
  - Myocardial infarction [None]

NARRATIVE: CASE EVENT DATE: 20231217
